FAERS Safety Report 16277350 (Version 1)
Quarter: 2019Q2

REPORT INFORMATION
  Report Type: Report from Study
  Country: CO (occurrence: CO)
  Receive Date: 20190506
  Receipt Date: 20190506
  Transmission Date: 20190711
  Serious: Yes (Other)
  Sender: FDA-Public Use
  Company Number: CO-UCBSA-2019016730

PATIENT
  Age: 63 Year
  Sex: Male
  Weight: 86 kg

DRUGS (8)
  1. CALCIUM +VIT D [Concomitant]
     Active Substance: CALCIUM\VITAMIN D
     Indication: OSTEOPOROSIS
     Dosage: 1500 MILLIGRAM, ONCE DAILY (QD)
     Route: 048
     Dates: start: 20090101
  2. CERTOLIZUMAB PEGOL [Suspect]
     Active Substance: CERTOLIZUMAB PEGOL
     Indication: RHEUMATOID ARTHRITIS
     Dosage: 400 MILLIGRAM, EV 4 WEEKS
     Route: 058
     Dates: start: 20121010, end: 20190301
  3. HUMALOG [Concomitant]
     Active Substance: INSULIN LISPRO
     Indication: DIABETES MELLITUS
     Dosage: 30 DOSAGE FORM, ONCE DAILY (QD)
     Route: 058
     Dates: start: 20120101
  4. LOSARTAN. [Concomitant]
     Active Substance: LOSARTAN
     Indication: HYPERTENSION
     Dosage: 50 MILLIGRAM, ONCE DAILY (QD)
     Route: 048
     Dates: start: 20190101
  5. LANTUS [Concomitant]
     Active Substance: INSULIN GLARGINE
     Indication: DIABETES MELLITUS
     Dosage: 28 DOSAGE FORM, ONCE DAILY (QD)
     Route: 058
     Dates: start: 20120101
  6. AMLODIPINE [Concomitant]
     Active Substance: AMLODIPINE BESYLATE
     Indication: HYPERTENSION
     Dosage: 5 MILLIGRAM, ONCE DAILY (QD)
     Route: 048
     Dates: start: 20190101
  7. HYDROCHLOROTHIAZIDE. [Concomitant]
     Active Substance: HYDROCHLOROTHIAZIDE
     Indication: PRODUCT USED FOR UNKNOWN INDICATION
     Dosage: 25 MILLIGRAM, ONCE DAILY (QD)
     Route: 048
     Dates: start: 20190101
  8. LEVOTHYROXINE. [Concomitant]
     Active Substance: LEVOTHYROXINE
     Indication: HYPOTHYROIDISM
     Dosage: 50 MILLIGRAM, ONCE DAILY (QD)
     Route: 048
     Dates: start: 20190101

REACTIONS (1)
  - Tooth extraction [Recovered/Resolved]

NARRATIVE: CASE EVENT DATE: 20190409
